FAERS Safety Report 12628222 (Version 1)
Quarter: 2016Q3

REPORT INFORMATION
  Report Type: Spontaneous
  Country: IT (occurrence: MW)
  Receive Date: 20160808
  Receipt Date: 20160808
  Transmission Date: 20161109
  Serious: Yes (Other)
  Sender: FDA-Public Use
  Company Number: IT-CIPLA LTD.-2016MW10297

PATIENT

DRUGS (7)
  1. ZIDOVUDINE. [Suspect]
     Active Substance: ZIDOVUDINE
     Dosage: UNK
     Route: 063
  2. LAMIVUDINE. [Suspect]
     Active Substance: LAMIVUDINE
     Dosage: UNK
     Route: 064
  3. NEVIRAPINE. [Suspect]
     Active Substance: NEVIRAPINE
     Indication: PROPHYLAXIS AGAINST HIV INFECTION
     Dosage: UNK
     Route: 064
  4. NEVIRAPINE. [Suspect]
     Active Substance: NEVIRAPINE
     Dosage: SINGLE-DOSE OF NVP SYRUP (2 MG/KG OF BODY WEIGHT) WITHIN 72 H OF BIRTH
     Route: 048
  5. LAMIVUDINE. [Suspect]
     Active Substance: LAMIVUDINE
     Dosage: UNK
     Route: 063
  6. ZIDOVUDINE. [Suspect]
     Active Substance: ZIDOVUDINE
     Dosage: UNK
     Route: 064
  7. NEVIRAPINE. [Suspect]
     Active Substance: NEVIRAPINE
     Dosage: UNK
     Route: 063

REACTIONS (3)
  - Anaemia [Unknown]
  - Foetal exposure during pregnancy [Unknown]
  - Exposure during breast feeding [Unknown]
